FAERS Safety Report 14608056 (Version 4)
Quarter: 2018Q2

REPORT INFORMATION
  Report Type: Spontaneous
  Country: US (occurrence: US)
  Receive Date: 20180307
  Receipt Date: 20180425
  Transmission Date: 20180711
  Serious: Yes (Other)
  Sender: FDA-Public Use
  Company Number: US-SA-2018SA061664

PATIENT
  Age: 67 Year
  Sex: Female
  Weight: 61.23 kg

DRUGS (6)
  1. DULCOLAX (BISACODYL) [Suspect]
     Active Substance: BISACODYL
     Indication: COLONOSCOPY
     Route: 048
     Dates: start: 20180225, end: 20180225
  2. IBUPROFEN. [Concomitant]
     Active Substance: IBUPROFEN
     Indication: HEADACHE
     Route: 065
     Dates: start: 20180225, end: 20180225
  3. COLD-EEZE /PRI/ [Concomitant]
     Active Substance: ZINC GLUCONATE
     Indication: NASOPHARYNGITIS
     Route: 065
     Dates: start: 20180223, end: 20180227
  4. IBUPROFEN. [Concomitant]
     Active Substance: IBUPROFEN
     Indication: INFLUENZA
     Route: 065
     Dates: start: 20180225, end: 20180225
  5. COLD-EEZE /PRI/ [Concomitant]
     Active Substance: ZINC GLUCONATE
     Indication: INFLUENZA
     Route: 065
     Dates: start: 20180223, end: 20180227
  6. IBUPROFEN. [Concomitant]
     Active Substance: IBUPROFEN
     Indication: NASOPHARYNGITIS
     Route: 065
     Dates: start: 20180225, end: 20180225

REACTIONS (7)
  - Syncope [Recovered/Resolved]
  - Seizure [Unknown]
  - Hyperhidrosis [Recovered/Resolved]
  - Dyspnoea [Recovered/Resolved]
  - Nausea [Recovered/Resolved]
  - Fatigue [Recovered/Resolved]
  - Abnormal behaviour [Recovered/Resolved]
